FAERS Safety Report 18617448 (Version 1)
Quarter: 2020Q4

REPORT INFORMATION
  Report Type: Spontaneous
  Country: DE (occurrence: DE)
  Receive Date: 20201215
  Receipt Date: 20201215
  Transmission Date: 20210114
  Serious: Yes (Other)
  Sender: FDA-Public Use
  Company Number: NVSC2020DE326258

PATIENT
  Age: 72 Year
  Sex: Male
  Weight: 104 kg

DRUGS (4)
  1. VALSARTAN - 1 A PHARMA 160 MG FILMTABLETTEN [Suspect]
     Active Substance: VALSARTAN
     Indication: ESSENTIAL HYPERTENSION
     Dosage: 1-0-0
     Route: 065
     Dates: start: 20160905, end: 20171220
  2. VALSARTAN - 1 A PHARMA 160 MG FILMTABLETTEN [Suspect]
     Active Substance: VALSARTAN
     Dosage: 1-0-0
     Route: 065
     Dates: start: 20180219, end: 20180418
  3. AMLODIPIN/VALSARTAN - 1 A PHARMA 5 MG/160 MG FILMTABLETTEN [Suspect]
     Active Substance: AMLODIPINE BESYLATE\VALSARTAN
     Indication: ESSENTIAL HYPERTENSION
     Dosage: 160 MG,QD (1-0-0)
     Route: 065
     Dates: start: 20180219, end: 20180418
  4. EXFORGE [Suspect]
     Active Substance: AMLODIPINE BESYLATE\VALSARTAN
     Indication: ESSENTIAL HYPERTENSION
     Dosage: 1 DF,QD (1-0-0)
     Route: 065
     Dates: start: 20180205, end: 20180218

REACTIONS (2)
  - Chronic lymphocytic leukaemia [Unknown]
  - Chronic leukaemia [Unknown]

NARRATIVE: CASE EVENT DATE: 20200804
